FAERS Safety Report 12667486 (Version 1)
Quarter: 2016Q3

REPORT INFORMATION
  Report Type: Spontaneous
  Country: US (occurrence: US)
  Receive Date: 20160819
  Receipt Date: 20160819
  Transmission Date: 20161109
  Serious: No
  Sender: FDA-Public Use
  Company Number: US-PFIZER INC-2016391235

PATIENT
  Age: 51 Year
  Sex: Female
  Weight: 61.23 kg

DRUGS (1)
  1. ADVIL SINUS CONGESTION AND PAIN [Suspect]
     Active Substance: IBUPROFEN\PHENYLEPHRINE HYDROCHLORIDE
     Indication: SINUSITIS
     Dosage: 1 DF, UNK

REACTIONS (7)
  - Vision blurred [Unknown]
  - Pain [Unknown]
  - Hypoacusis [Unknown]
  - Sinus pain [Unknown]
  - Headache [Unknown]
  - Ear pain [Unknown]
  - Vertigo [Unknown]
